FAERS Safety Report 7865875-2 (Version None)
Quarter: 2011Q4

REPORT INFORMATION
  Report Type: 
  Country: None (occurrence: None)
  Receive Date: 20111028
  Receipt Date: 20110314
  Transmission Date: 20120403
  Serious: No
  Sender: FDA-Public Use
  Company Number: US-GLAXOSMITHKLINE-A0918025A

PATIENT
  Sex: Female

DRUGS (2)
  1. ADVAIR DISKUS 100/50 [Suspect]
     Indication: ASTHMA
     Dosage: 1PUFF TWICE PER DAY
     Route: 055
     Dates: start: 20080101, end: 20110313
  2. PROAIR HFA [Concomitant]

REACTIONS (5)
  - TACHYCARDIA [None]
  - CONSTIPATION [None]
  - EPISTAXIS [None]
  - DYSPHONIA [None]
  - MOUTH HAEMORRHAGE [None]
